FAERS Safety Report 7888604-5 (Version None)
Quarter: 2011Q4

REPORT INFORMATION
  Report Type: 
  Country: None (occurrence: None)
  Receive Date: 20111103
  Receipt Date: 20111018
  Transmission Date: 20120403
  Serious: Yes (Hospitalization, Other)
  Sender: FDA-Public Use
  Company Number: JP-ROCHE-779642

PATIENT
  Sex: Female
  Weight: 45 kg

DRUGS (20)
  1. ALIMTA [Suspect]
     Indication: LUNG ADENOCARCINOMA
     Route: 041
     Dates: start: 20110329, end: 20110329
  2. OXYCONTIN [Suspect]
     Indication: LUNG ADENOCARCINOMA
     Route: 048
     Dates: end: 20110807
  3. LOXONIN [Concomitant]
     Route: 048
     Dates: end: 20110806
  4. EMEND [Concomitant]
     Route: 048
     Dates: start: 20110425, end: 20110425
  5. CARBOPLATIN [Suspect]
     Route: 041
     Dates: start: 20110425, end: 20110425
  6. DECADRON [Concomitant]
     Route: 042
     Dates: start: 20110425, end: 20110425
  7. DECADRON [Concomitant]
     Route: 048
     Dates: start: 20110426, end: 20110427
  8. MAGNESIUM SULFATE [Suspect]
     Indication: LUNG ADENOCARCINOMA
     Route: 048
     Dates: end: 20110807
  9. PANVITAN [Concomitant]
     Route: 048
     Dates: end: 20110721
  10. GRANISETRON HCL [Concomitant]
     Route: 042
     Dates: start: 20110425, end: 20110425
  11. EMEND [Concomitant]
     Route: 048
     Dates: start: 20110329, end: 20110329
  12. ALIMTA [Suspect]
     Route: 041
     Dates: start: 20110425, end: 20110425
  13. CARBOPLATIN [Suspect]
     Indication: LUNG ADENOCARCINOMA
     Route: 041
     Dates: start: 20110329, end: 20110329
  14. OLMESARTAN MEDOXOMIL [Concomitant]
     Route: 048
     Dates: end: 20110424
  15. DECADRON [Concomitant]
     Route: 048
     Dates: start: 20110330, end: 20110331
  16. AVASTIN [Suspect]
     Indication: LUNG ADENOCARCINOMA
     Route: 041
     Dates: start: 20110329, end: 20110425
  17. CYTOTEC [Concomitant]
     Route: 048
     Dates: end: 20110807
  18. GRANISETRON HCL [Concomitant]
     Route: 042
     Dates: start: 20110329, end: 20110329
  19. DECADRON [Concomitant]
     Route: 042
     Dates: start: 20110329, end: 20110329
  20. MORPHINE HCL ELIXIR [Concomitant]
     Route: 058
     Dates: start: 20110517, end: 20110601

REACTIONS (10)
  - DIARRHOEA [None]
  - MELAENA [None]
  - NAUSEA [None]
  - VOMITING [None]
  - CONSTIPATION [None]
  - GASTROENTERITIS ESCHERICHIA COLI [None]
  - DIVERTICULUM INTESTINAL HAEMORRHAGIC [None]
  - PERIODONTITIS [None]
  - HYPERTENSION [None]
  - ANAEMIA [None]
